FAERS Safety Report 7737122-3 (Version None)
Quarter: 2011Q3

REPORT INFORMATION
  Report Type: 
  Country: None (occurrence: None)
  Receive Date: 20110908
  Receipt Date: 20110831
  Transmission Date: 20111222
  Serious: Yes (Disabling, Other)
  Sender: FDA-Public Use
  Company Number: IL-ROCHE-799779

PATIENT
  Age: 64 Year
  Sex: Female

DRUGS (5)
  1. EFUDEX [Concomitant]
     Route: 065
  2. CISPLATIN [Concomitant]
     Route: 065
  3. XELODA [Suspect]
     Route: 065
  4. GABAPENTIN [Concomitant]
  5. IRINOTECAN HYDROCHLORIDE [Suspect]
     Route: 065

REACTIONS (5)
  - PAIN [None]
  - GAIT DISTURBANCE [None]
  - FALL [None]
  - PARALYSIS [None]
  - HYPOAESTHESIA [None]
